FAERS Safety Report 21321422 (Version 3)
Quarter: 2022Q4

REPORT INFORMATION
  Report Type: Report from Study
  Country: CA (occurrence: CA)
  Receive Date: 20220912
  Receipt Date: 20221103
  Transmission Date: 20230113
  Serious: Yes (Life-Threatening, Hospitalization, Disabling, Other)
  Sender: FDA-Public Use
  Company Number: CA-BRISTOL-MYERS SQUIBB COMPANY-2022-048107

PATIENT
  Age: 77 Year
  Sex: Male
  Weight: 86 kg

DRUGS (8)
  1. OPDIVO [Suspect]
     Active Substance: NIVOLUMAB
     Indication: Oesophageal carcinoma
     Dosage: BATCH NUMBER : 1901592 WITH EXPIRY DATE : 31-JAN-2024
     Route: 042
     Dates: start: 20220512, end: 20220630
  2. GLICLAZIDE [Concomitant]
     Active Substance: GLICLAZIDE
     Indication: Product used for unknown indication
     Route: 065
  3. PERINDOPRIL [Concomitant]
     Active Substance: PERINDOPRIL
     Indication: Product used for unknown indication
     Route: 065
  4. ELIQUIS [Concomitant]
     Active Substance: APIXABAN
     Indication: Atrial fibrillation
     Route: 048
  5. QUETIAPINE [Concomitant]
     Active Substance: QUETIAPINE
     Indication: Product used for unknown indication
     Route: 065
  6. JANUVIA [Concomitant]
     Active Substance: SITAGLIPTIN PHOSPHATE
     Indication: Product used for unknown indication
     Route: 065
  7. ASPIRIN [Concomitant]
     Active Substance: ASPIRIN
     Indication: Product used for unknown indication
     Route: 048
  8. LIPTOR [ATORVASTATIN] [Concomitant]
     Indication: Product used for unknown indication
     Route: 048

REACTIONS (19)
  - Loss of consciousness [Unknown]
  - Rash [Unknown]
  - Diarrhoea [Unknown]
  - Malaise [Unknown]
  - Fall [Unknown]
  - Muscular weakness [Unknown]
  - Peripheral swelling [Recovering/Resolving]
  - Fatigue [Unknown]
  - Decreased appetite [Unknown]
  - Appetite disorder [Unknown]
  - Weight decreased [Unknown]
  - Gait disturbance [Unknown]
  - Hepatitis [Not Recovered/Not Resolved]
  - Colitis [Recovered/Resolved]
  - Myositis [Recovered/Resolved]
  - Nephritis [Recovered/Resolved]
  - Pancreatitis [Recovered/Resolved]
  - Dehydration [Unknown]
  - Toxicity to various agents [Unknown]

NARRATIVE: CASE EVENT DATE: 20220501
